FAERS Safety Report 8555228-6 (Version None)
Quarter: 2012Q3

REPORT INFORMATION
  Report Type: 
  Country: None (occurrence: None)
  Receive Date: 20120731
  Receipt Date: 20120728
  Transmission Date: 20120928
  Serious: Yes (Other)
  Sender: FDA-Public Use
  Company Number: CHPA2012US015957

PATIENT
  Age: 65 Year
  Sex: Male

DRUGS (3)
  1. DRUG THERAPY NOS [Suspect]
     Dosage: UNK
     Dates: end: 20120720
  2. VOLTAREN [Suspect]
     Indication: ARTHRALGIA
     Dosage: UNK, UNK
     Route: 061
     Dates: start: 20120401, end: 20120720
  3. VOLTAREN [Suspect]
     Dosage: UNK, UNK
     Route: 061
     Dates: start: 20120728

REACTIONS (5)
  - BLOOD GLUCOSE INCREASED [None]
  - CONCOMITANT DISEASE AGGRAVATED [None]
  - WRONG TECHNIQUE IN DRUG USAGE PROCESS [None]
  - THERAPEUTIC RESPONSE UNEXPECTED [None]
  - OFF LABEL USE [None]
